FAERS Safety Report 9468117 (Version 1)
Quarter: 2013Q3

REPORT INFORMATION
  Report Type: Spontaneous
  Country: US (occurrence: US)
  Receive Date: 20130821
  Receipt Date: 20130821
  Transmission Date: 20140515
  Serious: No
  Sender: FDA-Public Use
  Company Number: US-009507513-1308USA007405

PATIENT
  Age: 24 Year
  Sex: Female
  Weight: 96.87 kg

DRUGS (8)
  1. NEXPLANON [Suspect]
     Indication: CONTRACEPTION
     Dosage: 1 ROD
     Route: 059
     Dates: start: 20130531
  2. CLARITIN [Concomitant]
  3. FLEXERIL [Concomitant]
  4. TOPAMAX [Concomitant]
  5. FIORICET [Concomitant]
  6. PROPANOL [Concomitant]
  7. ZOFRAN [Concomitant]
  8. TRIAMCINOLONE [Concomitant]
     Dosage: UNK

REACTIONS (1)
  - Pain of skin [Not Recovered/Not Resolved]
